FAERS Safety Report 6558475-8 (Version None)
Quarter: 2010Q1

REPORT INFORMATION
  Report Type: 
  Country: None (occurrence: None)
  Receive Date: 20100128
  Receipt Date: 20100128
  Transmission Date: 20100710
  Serious: Yes (Other)
  Sender: FDA-Public Use
  Company Number: None

PATIENT
  Age: 44 Year
  Sex: Female
  Weight: 74.8435 kg

DRUGS (1)
  1. IRON DEXTRAN [Suspect]
     Indication: IRON DEFICIENCY ANAEMIA
     Dosage: IV DRIP
     Route: 041
     Dates: start: 20100118, end: 20100118

REACTIONS (7)
  - ARTHRALGIA [None]
  - CHILLS [None]
  - DIZZINESS [None]
  - DRUG HYPERSENSITIVITY [None]
  - HEADACHE [None]
  - MYALGIA [None]
  - NAUSEA [None]
